FAERS Safety Report 4386736-X (Version None)
Quarter: 2004Q2

REPORT INFORMATION
  Report Type: 
  Country: None (occurrence: None)
  Receive Date: 20040629
  Receipt Date: 20040528
  Transmission Date: 20050107
  Serious: Yes (Hospitalization)
  Sender: FDA-Public Use
  Company Number: NL-MERCK-0405NLD00023

PATIENT
  Age: 74 Year
  Sex: Female

DRUGS (5)
  1. CARBASPIRIN CALCIUM [Concomitant]
     Route: 048
     Dates: start: 19910101
  2. DILTIAZEM HYDROCHLORIDE [Concomitant]
     Route: 048
     Dates: start: 19910101
  3. METOPROLOL TARTRATE [Concomitant]
     Route: 048
     Dates: start: 19910101
  4. ZOCOR [Concomitant]
     Route: 065
     Dates: start: 19910101
  5. ZOCOR [Suspect]
     Indication: HYPERCHOLESTEROLAEMIA
     Route: 048
     Dates: start: 20030523, end: 20040502

REACTIONS (4)
  - ANGIONEUROTIC OEDEMA [None]
  - MALAISE [None]
  - PAIN [None]
  - RASH [None]
